FAERS Safety Report 18516522 (Version 1)
Quarter: 2020Q4

REPORT INFORMATION
  Report Type: Spontaneous
  Country: US (occurrence: US)
  Receive Date: 20201118
  Receipt Date: 20201118
  Transmission Date: 20210114
  Serious: Yes (Other)
  Sender: FDA-Public Use
  Company Number: US-BAUSCH-BL-2020-032498

PATIENT
  Age: 92 Year
  Sex: Female

DRUGS (1)
  1. TOBRAMYCIN AND DEXAMETHASONE [Suspect]
     Active Substance: DEXAMETHASONE\TOBRAMYCIN
     Indication: CORNEAL INFECTION
     Dosage: FOR LEFT EYE. STRENGTH: 0.3 PERCENT/0.1 PERCENT
     Route: 047
     Dates: start: 2019, end: 2019

REACTIONS (3)
  - Symptom recurrence [Not Recovered/Not Resolved]
  - Eye irritation [Recovered/Resolved]
  - Corneal infection [Not Recovered/Not Resolved]

NARRATIVE: CASE EVENT DATE: 2019
